FAERS Safety Report 10713667 (Version 3)
Quarter: 2015Q1

REPORT INFORMATION
  Report Type: Spontaneous
  Country: US (occurrence: US)
  Receive Date: 20150115
  Receipt Date: 20150129
  Transmission Date: 20150721
  Serious: Yes (Hospitalization, Other)
  Sender: FDA-Public Use
  Company Number: US-UNITED THERAPEUTICS-UNT-2014-010979

PATIENT
  Sex: Female
  Weight: 79.2 kg

DRUGS (4)
  1. VELETRI [Concomitant]
     Active Substance: EPOPROSTENOL
     Indication: PRODUCT USED FOR UNKNOWN INDICATION
  2. LETAIRIS [Concomitant]
     Active Substance: AMBRISENTAN
     Indication: PRODUCT USED FOR UNKNOWN INDICATION
  3. TYVASO [Suspect]
     Active Substance: TREPROSTINIL
     Indication: PULMONARY ARTERIAL HYPERTENSION
     Dosage: 18-54 ?G, QID
     Dates: start: 20140926
  4. TYVASO [Suspect]
     Active Substance: TREPROSTINIL
     Dosage: 18-54 ?G, QID
     Dates: start: 20140926

REACTIONS (17)
  - Mental status changes [Unknown]
  - Therapy cessation [Unknown]
  - Crohn^s disease [Unknown]
  - Oral discomfort [Unknown]
  - Diarrhoea [Unknown]
  - Drug dose omission [Unknown]
  - Drug abuse [Unknown]
  - Device damage [Unknown]
  - Cough [Unknown]
  - Dry mouth [Unknown]
  - Oral mucosal blistering [Unknown]
  - Pain in jaw [Unknown]
  - Dyspnoea [Unknown]
  - Neuropathy peripheral [Unknown]
  - Dehydration [Unknown]
  - Pulmonary arterial hypertension [Unknown]
  - Nausea [Unknown]

NARRATIVE: CASE EVENT DATE: 2014
